FAERS Safety Report 5043047-7 (Version None)
Quarter: 2006Q3

REPORT INFORMATION
  Report Type: 
  Country: None (occurrence: None)
  Receive Date: 20060705
  Receipt Date: 20060622
  Transmission Date: 20061208
  Serious: Yes (Hospitalization)
  Sender: FDA-Public Use
  Company Number: DK-NOVOPROD-254363

PATIENT
  Age: 59 Year
  Sex: Male
  Weight: 138 kg

DRUGS (11)
  1. INSULATARD FLEXPEN HM(GE) [Suspect]
     Indication: INSULIN-REQUIRING TYPE II DIABETES MELLITUS
     Dosage: 80 IU, QD
     Route: 058
     Dates: start: 20030616
  2. BLINDED [Concomitant]
     Indication: INSULIN-REQUIRING TYPE II DIABETES MELLITUS
     Dosage: 1 TAB, BID
     Route: 048
     Dates: start: 20030618
  3. BLINDED [Concomitant]
     Dosage: 2 TAB, BID
     Route: 048
     Dates: start: 20030618
  4. NORVASC                            /00972401/ [Concomitant]
     Indication: HYPERTENSION
     Dosage: 10 MG, QD
     Dates: start: 19980101, end: 20040610
  5. NORVASC                            /00972401/ [Concomitant]
     Dosage: 20 MG, QD
     Dates: start: 20040610
  6. BURINEX [Concomitant]
     Indication: HYPERTENSION
     Dosage: UNK, BID
     Dates: start: 19980101, end: 20040610
  7. BURINEX [Concomitant]
     Dosage: UNK, QID
     Dates: start: 20040610
  8. ZARATOR                            /01326101/ [Concomitant]
     Indication: HYPERCHOLESTEROLAEMIA
     Dosage: 80 MG, QD
     Dates: start: 19980101
  9. COVERSYL                           /00790701/ [Concomitant]
     Indication: HYPERTENSION
     Dosage: 4 MG, QD
     Dates: start: 19980101, end: 20040829
  10. COVERSYL                           /00790701/ [Concomitant]
     Dosage: 8 MG, QD
     Dates: start: 20040829
  11. SELOZOK [Concomitant]
     Indication: HYPERTENSION
     Dosage: 50 MG, QD
     Dates: start: 20040610

REACTIONS (2)
  - BRADYCARDIA [None]
  - CARDIAC FAILURE [None]
